FAERS Safety Report 24384123 (Version 1)
Quarter: 2024Q4

REPORT INFORMATION
  Report Type: Spontaneous
  Country: JP (occurrence: JP)
  Receive Date: 20241001
  Receipt Date: 20241001
  Transmission Date: 20250115
  Serious: Yes (Other)
  Sender: BRISTOL MYERS SQUIBB
  Company Number: JP-BRISTOL-MYERS SQUIBB COMPANY-2024-149082

PATIENT
  Sex: Female

DRUGS (1)
  1. ORENCIA [Suspect]
     Active Substance: ABATACEPT
     Indication: Product used for unknown indication
     Dosage: DOSE : UNAVAILABLE;     FREQ : UNAVAILABLE
     Route: 058
     Dates: start: 20240913

REACTIONS (7)
  - Injection site haemorrhage [Unknown]
  - Diarrhoea [Unknown]
  - Faeces soft [Unknown]
  - Hallucination, visual [Unknown]
  - Parasomnia [Unknown]
  - Proctalgia [Unknown]
  - Constipation [Unknown]

NARRATIVE: CASE EVENT DATE: 20240901
